FAERS Safety Report 4995076-7 (Version None)
Quarter: 2006Q2

REPORT INFORMATION
  Report Type: 
  Country: None (occurrence: None)
  Receive Date: 20060503
  Receipt Date: 20050830
  Transmission Date: 20061013
  Serious: Yes (Hospitalization, Other)
  Sender: FDA-Public Use
  Company Number: A-US2005-10242

PATIENT
  Age: 12 Year
  Sex: Female

DRUGS (5)
  1. TRACLEER [Suspect]
     Indication: PULMONARY HYPERTENSION
     Dosage: SEE IMAGE, ORAL
     Route: 048
     Dates: start: 20041108, end: 20041207
  2. TRACLEER [Suspect]
     Indication: PULMONARY HYPERTENSION
     Dosage: SEE IMAGE, ORAL
     Route: 048
     Dates: start: 20041208
  3. NAPROSYN [Suspect]
     Dosage: 375 MG, TID
  4. LASIX [Concomitant]
  5. ENALAPRIL MALEATE [Concomitant]

REACTIONS (5)
  - DIARRHOEA HAEMORRHAGIC [None]
  - DUODENAL ULCER [None]
  - FAECES DISCOLOURED [None]
  - GASTRIC ULCER [None]
  - GASTROINTESTINAL HAEMORRHAGE [None]
